FAERS Safety Report 25631187 (Version 1)
Quarter: 2025Q3

REPORT INFORMATION
  Report Type: Report from Study
  Country: CA (occurrence: CA)
  Receive Date: 20250801
  Receipt Date: 20250801
  Transmission Date: 20251021
  Serious: Yes (Hospitalization)
  Sender: BIOCON
  Company Number: CA-BIOCON BIOLOGICS LIMITED-BBL2025004051

PATIENT

DRUGS (1)
  1. ADALIMUMAB [Suspect]
     Active Substance: ADALIMUMAB
     Indication: Crohn^s disease
     Dosage: 40 MILLIGRAM, Q2W
     Route: 065

REACTIONS (5)
  - Fall [Recovered/Resolved]
  - Accident [Recovered/Resolved]
  - Fracture [Recovered/Resolved]
  - Skin reaction [Recovered/Resolved]
  - Hypersensitivity [Recovered/Resolved]
